FAERS Safety Report 4829846-2 (Version None)
Quarter: 2005Q4

REPORT INFORMATION
  Report Type: 
  Country: None (occurrence: None)
  Receive Date: 20051115
  Receipt Date: 20051102
  Transmission Date: 20060501
  Serious: Yes (Hospitalization)
  Sender: FDA-Public Use
  Company Number: 2005BI012733

PATIENT
  Age: 52 Year
  Sex: Female

DRUGS (14)
  1. AVONEX [Suspect]
     Indication: MULTIPLE SCLEROSIS
     Dosage: 30 UG;QW; IM
     Route: 030
     Dates: start: 19991201
  2. AVONEX [Suspect]
     Indication: MULTIPLE SCLEROSIS
     Dosage: 30 UG;QW; IM
     Route: 030
  3. MOBIC [Concomitant]
  4. SINGULAIR [Concomitant]
  5. IRON SUPPLEMENT [Concomitant]
  6. PRILOSEC OTC [Concomitant]
  7. PROVIGIL [Concomitant]
  8. PAXIL [Concomitant]
  9. VIOXX [Concomitant]
  10. AGGRENOX XL [Concomitant]
  11. LORATADINE [Concomitant]
  12. PREVACID [Concomitant]
  13. NASACORT [Concomitant]
  14. PAIN MEDICATION [Concomitant]

REACTIONS (2)
  - RECTAL ADENOMA [None]
  - RECTAL HAEMORRHAGE [None]
